FAERS Safety Report 19032167 (Version 1)
Quarter: 2021Q1

REPORT INFORMATION
  Report Type: Spontaneous
  Country: CA (occurrence: CA)
  Receive Date: 20210319
  Receipt Date: 20210319
  Transmission Date: 20210420
  Serious: Yes (Hospitalization, Other)
  Sender: FDA-Public Use
  Company Number: NVSC2021CA057089

PATIENT
  Age: 51 Year
  Sex: Female

DRUGS (12)
  1. PERINDOPRIL ERBUMINE. [Suspect]
     Active Substance: PERINDOPRIL ERBUMINE
     Indication: HYPERTENSION
     Dosage: UNK
     Route: 065
  2. NEXIUM [Suspect]
     Active Substance: ESOMEPRAZOLE MAGNESIUM
     Indication: ABDOMINAL DISCOMFORT
     Dosage: UNK
     Route: 065
  3. XELJANZ [Suspect]
     Active Substance: TOFACITINIB CITRATE
     Dosage: 5 MG, BID
     Route: 048
     Dates: start: 2019, end: 202002
  4. PREDNISONE. [Suspect]
     Active Substance: PREDNISONE
     Dosage: UNK
     Route: 065
  5. MORPHINE SULFATE. [Suspect]
     Active Substance: MORPHINE SULFATE
     Indication: PRODUCT USED FOR UNKNOWN INDICATION
     Dosage: UNK
     Route: 065
     Dates: start: 2019
  6. XELJANZ [Suspect]
     Active Substance: TOFACITINIB CITRATE
     Dosage: 5 MG, BID
     Route: 065
     Dates: start: 20200730
  7. XELJANZ [Suspect]
     Active Substance: TOFACITINIB CITRATE
     Dosage: 5 MG, BID
     Route: 065
     Dates: start: 20200803
  8. PREDNISONE. [Suspect]
     Active Substance: PREDNISONE
     Indication: PRODUCT USED FOR UNKNOWN INDICATION
     Dosage: 10 MG, QD
     Route: 065
  9. LEFLUNOMIDE. [Suspect]
     Active Substance: LEFLUNOMIDE
     Indication: RHEUMATOID ARTHRITIS
     Dosage: UNK
     Route: 065
     Dates: start: 20170321, end: 20171208
  10. METHOTREXATE SODIUM. [Suspect]
     Active Substance: METHOTREXATE SODIUM
     Indication: RHEUMATOID ARTHRITIS
     Dosage: UNK
     Route: 065
  11. XELJANZ [Suspect]
     Active Substance: TOFACITINIB CITRATE
     Indication: RHEUMATOID ARTHRITIS
     Dosage: 5 MG, BID
     Route: 048
     Dates: start: 20171113, end: 20190322
  12. PERINDOPRIL [Suspect]
     Active Substance: PERINDOPRIL
     Indication: HYPERTENSION
     Dosage: UNK
     Route: 065

REACTIONS (36)
  - Diarrhoea [Recovering/Resolving]
  - Diverticulitis [Not Recovered/Not Resolved]
  - Abdominal pain [Unknown]
  - Insomnia [Not Recovered/Not Resolved]
  - Tooth fracture [Unknown]
  - Clostridium difficile infection [Unknown]
  - Vomiting [Not Recovered/Not Resolved]
  - Condition aggravated [Unknown]
  - Dyspepsia [Unknown]
  - Acne [Not Recovered/Not Resolved]
  - Nasopharyngitis [Not Recovered/Not Resolved]
  - Hand deformity [Unknown]
  - Gingival disorder [Unknown]
  - Chest pain [Unknown]
  - Pigmentation disorder [Unknown]
  - Fatigue [Unknown]
  - Teeth brittle [Unknown]
  - Feeling abnormal [Unknown]
  - Pain in extremity [Unknown]
  - Dry mouth [Unknown]
  - Peripheral swelling [Not Recovered/Not Resolved]
  - Tooth abscess [Not Recovered/Not Resolved]
  - Abdominal pain upper [Unknown]
  - Mucous stools [Unknown]
  - Frustration tolerance decreased [Unknown]
  - Toothache [Unknown]
  - General physical health deterioration [Unknown]
  - Drug intolerance [Unknown]
  - Nausea [Recovering/Resolving]
  - Therapeutic product effect incomplete [Unknown]
  - Musculoskeletal chest pain [Unknown]
  - Rheumatoid arthritis [Unknown]
  - Skin plaque [Unknown]
  - Haematochezia [Unknown]
  - Gingival abscess [Unknown]
  - Swelling face [Not Recovered/Not Resolved]

NARRATIVE: CASE EVENT DATE: 201711
